FAERS Safety Report 5026155-6 (Version None)
Quarter: 2006Q2

REPORT INFORMATION
  Report Type: 
  Country: None (occurrence: None)
  Receive Date: 20060608
  Receipt Date: 20060601
  Transmission Date: 20061013
  Serious: Yes (Hospitalization)
  Sender: FDA-Public Use
  Company Number: FR200606000471

PATIENT
  Age: 49 Year
  Sex: Female

DRUGS (2)
  1. GEMZAR [Suspect]
     Indication: BREAST CANCER METASTATIC
     Dosage: 1200 MG, OTHER, INTRAVENOUS
     Route: 042
     Dates: start: 20060117
  2. TAXOTERE [Concomitant]

REACTIONS (8)
  - ECTROPION [None]
  - EYE DISORDER [None]
  - GENITAL ULCERATION [None]
  - MOUTH ULCERATION [None]
  - MUCOSAL INFLAMMATION [None]
  - OESOPHAGEAL DISORDER [None]
  - PHARYNGEAL LESION [None]
  - ULCER [None]
